FAERS Safety Report 7778369-X (Version None)
Quarter: 2011Q3

REPORT INFORMATION
  Report Type: 
  Country: None (occurrence: None)
  Receive Date: 20110926
  Receipt Date: 20110922
  Transmission Date: 20111222
  Serious: Yes (Hospitalization)
  Sender: FDA-Public Use
  Company Number: US-GLAXOSMITHKLINE-A0753989A

PATIENT
  Age: 59 Year
  Sex: Female
  Weight: 135.9 kg

DRUGS (10)
  1. SPIRIVA [Concomitant]
  2. METFORMIN HCL [Concomitant]
  3. LISINOPRIL [Concomitant]
  4. HYDROCHLOROTHIAZIDE [Concomitant]
  5. AVANDIA [Suspect]
     Indication: DIABETES MELLITUS
     Dosage: 4MG TWICE PER DAY
     Route: 048
     Dates: start: 20041020, end: 20070301
  6. COREG [Concomitant]
  7. ACIPHEX [Concomitant]
  8. CYMBALTA [Concomitant]
  9. VYTORIN [Concomitant]
  10. ALBUTEROL [Concomitant]

REACTIONS (5)
  - PARALYSIS [None]
  - MYOCARDIAL INFARCTION [None]
  - LACUNAR INFARCTION [None]
  - ISCHAEMIC CARDIOMYOPATHY [None]
  - ATRIOVENTRICULAR BLOCK [None]
